FAERS Safety Report 21137563 (Version 6)
Quarter: 2022Q4

REPORT INFORMATION
  Report Type: Spontaneous
  Country: CA (occurrence: CA)
  Receive Date: 20220727
  Receipt Date: 20221201
  Transmission Date: 20230113
  Serious: Yes (Hospitalization, Other)
  Sender: FDA-Public Use
  Company Number: CA-PFIZER INC-PV202200025959

PATIENT
  Age: 52 Year
  Sex: Female

DRUGS (2)
  1. IBRANCE [Suspect]
     Active Substance: PALBOCICLIB
     Indication: Breast cancer
     Dosage: 125 MG, CYCLIC 1X/DAY ON DAY 1-21 OF EACH CYCLE 21 DAYS ON, 7 DAYS OFF
     Route: 048
     Dates: start: 20220722
  2. LETROZOLE [Concomitant]
     Active Substance: LETROZOLE
     Dosage: UNK

REACTIONS (9)
  - Anaemia [Unknown]
  - Illness [Unknown]
  - Full blood count decreased [Unknown]
  - Pyrexia [Unknown]
  - Second primary malignancy [Unknown]
  - Plasma cell myeloma [Unknown]
  - Off label use [Unknown]
  - Anxiety [Unknown]
  - Full blood count decreased [Unknown]

NARRATIVE: CASE EVENT DATE: 20220101
